FAERS Safety Report 24335410 (Version 2)
Quarter: 2024Q4

REPORT INFORMATION
  Report Type: Spontaneous
  Country: US (occurrence: US)
  Receive Date: 20240918
  Receipt Date: 20241001
  Transmission Date: 20250115
  Serious: No
  Sender: ASTELLAS
  Company Number: US-ASTELLAS-2024-AER-005600

PATIENT

DRUGS (1)
  1. IZERVAY [Suspect]
     Active Substance: AVACINCAPTAD PEGOL SODIUM
     Indication: Dry age-related macular degeneration
     Dosage: 1 DOSE QMO (2 MG (0.1 ML OF 20MG/ML SOLUTION)

REACTIONS (2)
  - Inadequate aseptic technique in manufacturing of product [Unknown]
  - Intercepted product preparation error [Unknown]
